FAERS Safety Report 4707396-1 (Version None)
Quarter: 2005Q3

REPORT INFORMATION
  Report Type: 
  Country: None (occurrence: None)
  Receive Date: 20050701
  Receipt Date: 20050620
  Transmission Date: 20060218
  Serious: Yes (Other)
  Sender: FDA-Public Use
  Company Number: L05-ISR-02128-01

PATIENT
  Age: 37 Year
  Sex: Female

DRUGS (14)
  1. CARBAMAZEPINE [Suspect]
     Indication: NEUROPATHIC PAIN
     Dosage: 1000 MG QD
  2. CARBAMAZEPINE [Suspect]
     Indication: NEUROPATHIC PAIN
     Dosage: 600 MG QD
  3. CARBAMAZEPINE [Suspect]
     Indication: NEUROPATHIC PAIN
     Dosage: 400 MG QD
  4. OXYBUTYNIN [Suspect]
     Indication: HYPERTONIC BLADDER
     Dosage: 5 MG BID
  5. OXYBUTYNIN [Suspect]
     Indication: HYPERTONIC BLADDER
     Dosage: 5 MG BID
  6. OXYBUTYNIN [Suspect]
     Indication: HYPERTONIC BLADDER
     Dosage: 5 MG QD
  7. DANTROLENE [Suspect]
     Indication: MUSCLE SPASTICITY
  8. DANTROLENE [Suspect]
     Indication: MUSCLE SPASTICITY
     Dosage: 125 MG QD
  9. DANTROLENE [Suspect]
     Indication: MUSCLE SPASTICITY
     Dosage: 100 MG QD
  10. DANTROLENE [Suspect]
     Indication: MUSCLE SPASTICITY
     Dosage: 125 MG QD
  11. DANTROLENE [Suspect]
     Indication: MUSCLE SPASTICITY
     Dosage: 25 MG QD
  12. FLUVOXAMINE [Suspect]
     Indication: DEPRESSION
  13. BACLOFEN [Concomitant]
  14. ATENOLOL [Concomitant]

REACTIONS (15)
  - ANTICONVULSANT DRUG LEVEL INCREASED [None]
  - BALANCE DISORDER [None]
  - CONFUSIONAL STATE [None]
  - DIZZINESS [None]
  - DRUG INTERACTION [None]
  - DRUG TOXICITY [None]
  - DYSARTHRIA [None]
  - HYPERTONIC BLADDER [None]
  - METABOLIC DISORDER [None]
  - MUSCLE SPASTICITY [None]
  - NYSTAGMUS [None]
  - PAIN [None]
  - POLLAKIURIA [None]
  - SOMNOLENCE [None]
  - VOMITING [None]
